FAERS Safety Report 6318545-6 (Version None)
Quarter: 2009Q3

REPORT INFORMATION
  Report Type: 
  Country: None (occurrence: None)
  Receive Date: 20090821
  Receipt Date: 20090813
  Transmission Date: 20100115
  Serious: Yes (Other)
  Sender: FDA-Public Use
  Company Number: PHHY2009IE20164

PATIENT
  Sex: Male

DRUGS (4)
  1. RASILEZ [Suspect]
     Indication: HYPERTENSION
     Dosage: 150 MG
     Route: 048
     Dates: start: 20090204, end: 20090408
  2. ISTIN [Concomitant]
     Dosage: 5 MG, UNK
  3. CENTYL [Concomitant]
     Dosage: 2.5 MG
  4. LIPITOR [Concomitant]
     Dosage: 10

REACTIONS (3)
  - BLOOD CHOLESTEROL INCREASED [None]
  - BLOOD CREATININE INCREASED [None]
  - RENAL FAILURE [None]
